FAERS Safety Report 21104353 (Version 1)
Quarter: 2022Q3

REPORT INFORMATION
  Report Type: Spontaneous
  Country: US (occurrence: None)
  Receive Date: 20220719
  Receipt Date: 20220719
  Transmission Date: 20221026
  Serious: No
  Sender: FDA-Public Use
  Company Number: None

PATIENT
  Age: 60 Year
  Sex: Female
  Weight: 76.5 kg

DRUGS (11)
  1. PAXLOVID [Suspect]
     Active Substance: NIRMATRELVIR\RITONAVIR
     Indication: COVID-19
     Dosage: FREQUENCY : TWICE A DAY;?
     Route: 048
     Dates: start: 20220711, end: 20220713
  2. NP THYROID [Concomitant]
     Active Substance: LEVOTHYROXINE\LIOTHYRONINE
  3. CYMBALTA [Concomitant]
     Active Substance: DULOXETINE HYDROCHLORIDE
  4. PLAQUENIL [Concomitant]
     Active Substance: HYDROXYCHLOROQUINE SULFATE
  5. Luflumide [Concomitant]
  6. DEXILANT [Concomitant]
     Active Substance: DEXLANSOPRAZOLE
  7. GABAPENTIN [Concomitant]
     Active Substance: GABAPENTIN
  8. TRAZODONE [Concomitant]
     Active Substance: TRAZODONE HYDROCHLORIDE
  9. CALCIUM [Concomitant]
     Active Substance: CALCIUM
  10. MAGNESIUM [Concomitant]
     Active Substance: MAGNESIUM
  11. ZINC [Concomitant]
     Active Substance: ZINC

REACTIONS (5)
  - Malaise [None]
  - Loss of consciousness [None]
  - Hypoaesthesia [None]
  - Pain [None]
  - Abdominal pain upper [None]

NARRATIVE: CASE EVENT DATE: 20220712
